FAERS Safety Report 25632040 (Version 5)
Quarter: 2025Q4

REPORT INFORMATION
  Report Type: Spontaneous
  Country: US (occurrence: US)
  Receive Date: 20250801
  Receipt Date: 20251105
  Transmission Date: 20260117
  Serious: Yes (Hospitalization, Other)
  Sender: MERCK SHARP & DOHME LLC
  Company Number: US-009507513-2312309

PATIENT
  Sex: Female
  Weight: 26.8 kg

DRUGS (25)
  1. WINREVAIR [Suspect]
     Active Substance: SOTATERCEPT-CSRK
     Indication: Product used for unknown indication
     Dates: start: 20250509
  2. WINREVAIR [Suspect]
     Active Substance: SOTATERCEPT-CSRK
     Dates: start: 202504, end: 202508
  3. WINREVAIR [Suspect]
     Active Substance: SOTATERCEPT-CSRK
  4. WINREVAIR [Suspect]
     Active Substance: SOTATERCEPT-CSRK
  5. REMODULIN [Suspect]
     Active Substance: TREPROSTINIL
     Indication: Pulmonary arterial hypertension
     Dosage: CONCENTRATION: 10 MG/ML; FREQUENCY: CONTINUOUS
     Route: 058
     Dates: start: 20190508
  6. TYVASO DPI [Suspect]
     Active Substance: TREPROSTINIL
     Indication: Pulmonary arterial hypertension
     Route: 055
  7. TYVASO DPI [Suspect]
     Active Substance: TREPROSTINIL
     Indication: Pulmonary arterial hypertension
     Route: 055
  8. TYVASO DPI [Suspect]
     Active Substance: TREPROSTINIL
     Indication: Pulmonary arterial hypertension
     Route: 055
  9. TYVASO DPI [Suspect]
     Active Substance: TREPROSTINIL
     Indication: Pulmonary arterial hypertension
     Route: 055
     Dates: start: 20241104
  10. FUROSEMIDE [Concomitant]
     Active Substance: FUROSEMIDE
  11. LETAIRIS [Concomitant]
     Active Substance: AMBRISENTAN
  12. KETAMINE HYDROCHLORIDE [Concomitant]
     Active Substance: KETAMINE HYDROCHLORIDE
  13. LECITHIN [Concomitant]
     Active Substance: LECITHIN
  14. LEVALBUTEROL TARTRATE [Concomitant]
     Active Substance: LEVALBUTEROL TARTRATE
  15. IRON [Concomitant]
     Active Substance: IRON
  16. CLONIDINE [Concomitant]
     Active Substance: CLONIDINE
  17. KETOPROFEN [Concomitant]
     Active Substance: KETOPROFEN
  18. ASPIRIN [Concomitant]
     Active Substance: ASPIRIN
  19. LIDOCAINE HYDROCHLORIDE [Concomitant]
     Active Substance: LIDOCAINE HYDROCHLORIDE
  20. DIPHENHYDRAMINE HYDROCHLORIDE [Concomitant]
     Active Substance: DIPHENHYDRAMINE HYDROCHLORIDE
  21. LORATADINE [Concomitant]
     Active Substance: LORATADINE
  22. AMITRIPTYLINE HYDROCHLORIDE [Concomitant]
     Active Substance: AMITRIPTYLINE HYDROCHLORIDE
  23. GABAPENTIN [Concomitant]
     Active Substance: GABAPENTIN
  24. POLOXAMER [Concomitant]
     Active Substance: POLOXAMER
  25. OXYGEN [Concomitant]
     Active Substance: OXYGEN

REACTIONS (6)
  - Haemoptysis [Recovered/Resolved]
  - Haemoglobin increased [Not Recovered/Not Resolved]
  - Rash [Unknown]
  - Arteriovenous fistula [Not Recovered/Not Resolved]
  - Product use issue [Unknown]
  - Hospice care [Not Recovered/Not Resolved]

NARRATIVE: CASE EVENT DATE: 20250101
